FAERS Safety Report 5672558-6 (Version None)
Quarter: 2008Q1

REPORT INFORMATION
  Report Type: 
  Country: None (occurrence: None)
  Receive Date: 20080318
  Receipt Date: 20080318
  Transmission Date: 20080703
  Serious: Yes (Other)
  Sender: FDA-Public Use
  Company Number: None

PATIENT
  Sex: Female

DRUGS (1)
  1. OPTIRAY 240 [Suspect]
     Indication: COMPUTERISED TOMOGRAM

REACTIONS (4)
  - BLOOD PRESSURE SYSTOLIC INCREASED [None]
  - OXYGEN SATURATION DECREASED [None]
  - PHARYNGEAL OEDEMA [None]
  - THROAT TIGHTNESS [None]
